FAERS Safety Report 9340424 (Version 1)
Quarter: 2013Q2

REPORT INFORMATION
  Report Type: Spontaneous
  Country: US (occurrence: None)
  Receive Date: 20130610
  Receipt Date: 20130610
  Transmission Date: 20140414
  Serious: Yes (Other)
  Sender: FDA-Public Use
  Company Number: None

PATIENT
  Age: 56 Year
  Sex: Female
  Weight: 61.24 kg

DRUGS (1)
  1. FORTEO [Suspect]
     Indication: OSTEOPOROSIS
     Dosage: DAILY X 2 YEARS??INITITATED  APRIL 15TH    - MAY 1 + MAY 13
     Route: 058

REACTIONS (3)
  - Injection site pain [None]
  - Injection site pain [None]
  - Injection site reaction [None]
